FAERS Safety Report 7709200-6 (Version None)
Quarter: 2011Q3

REPORT INFORMATION
  Report Type: 
  Country: None (occurrence: None)
  Receive Date: 20110825
  Receipt Date: 20110818
  Transmission Date: 20111222
  Serious: Yes (Death, Hospitalization)
  Sender: FDA-Public Use
  Company Number: PHHY2011EC74283

PATIENT
  Sex: Male

DRUGS (1)
  1. DIOVAN HCT [Suspect]
     Indication: HYPERTENSION
     Dosage: (VALS 160 MG, HYDR 12.5 MG) 1 DF, DAILY
     Route: 048
     Dates: start: 20070307, end: 20110501

REACTIONS (2)
  - OEDEMA PERIPHERAL [None]
  - CARDIAC FAILURE [None]
